FAERS Safety Report 8533750-6 (Version None)
Quarter: 2012Q3

REPORT INFORMATION
  Report Type: 
  Country: None (occurrence: None)
  Receive Date: 20120724
  Receipt Date: 20120719
  Transmission Date: 20120928
  Serious: Yes (Hospitalization)
  Sender: FDA-Public Use
  Company Number: ZA-SANOFI-AVENTIS-2012SA051219

PATIENT
  Age: 73 Year
  Sex: Male

DRUGS (11)
  1. SOLOSTAR [Suspect]
     Indication: DEVICE THERAPY
     Dates: start: 20120201
  2. ACETYLSALICYLIC ACID SRT [Concomitant]
     Route: 048
     Dates: start: 20000201
  3. LANTUS [Suspect]
     Indication: TYPE 2 DIABETES MELLITUS
     Dosage: DOSE:18 UNIT(S)
     Route: 058
     Dates: start: 20120201
  4. SIMVASTATIN [Concomitant]
     Route: 048
     Dates: start: 20000201
  5. BICALUTAMIDE [Concomitant]
     Indication: PROSTATE CANCER
     Route: 048
     Dates: start: 20110301
  6. DIAMICRON MR [Concomitant]
     Route: 048
     Dates: start: 20000201
  7. GLUCOPHAGE [Concomitant]
     Route: 048
     Dates: start: 20000201
  8. VALSARTAN [Concomitant]
     Indication: HYPERTENSION
     Route: 048
     Dates: start: 20000201
  9. CARVEDILOL [Concomitant]
     Indication: HYPERTENSION
     Route: 048
     Dates: start: 20000201
  10. LASIX [Concomitant]
     Route: 048
     Dates: start: 20120618
  11. PLENISH-K [Concomitant]
     Route: 048
     Dates: start: 20120618

REACTIONS (3)
  - HYPERGLYCAEMIA [None]
  - DYSPNOEA [None]
  - FATIGUE [None]
